FAERS Safety Report 10776245 (Version 1)
Quarter: 2015Q1

REPORT INFORMATION
  Report Type: Spontaneous
  Country: US (occurrence: None)
  Receive Date: 20150205
  Receipt Date: 20150205
  Transmission Date: 20150721
  Serious: Yes (Hospitalization)
  Sender: FDA-Public Use
  Company Number: None

PATIENT
  Age: 63 Year
  Sex: Female
  Weight: 63.8 kg

DRUGS (14)
  1. VITAMIN C [Concomitant]
     Active Substance: ASCORBIC ACID
  2. OMEPRAZOLE. [Concomitant]
     Active Substance: OMEPRAZOLE
  3. KCL [Concomitant]
     Active Substance: POTASSIUM CHLORIDE
  4. ROPIVICAINE [Suspect]
     Active Substance: ROPIVACAINE
     Indication: SHOULDER ARTHROPLASTY
     Dosage: 6 ML/HR ONCE INTRASCALENE
  5. PRAVASTATIN [Concomitant]
     Active Substance: PRAVASTATIN\PRAVASTATIN SODIUM
  6. ASA [Concomitant]
     Active Substance: ASPIRIN
  7. IBUPROPFEN [Concomitant]
  8. CA CITRATE [Concomitant]
  9. ALPRAZOLAM. [Concomitant]
     Active Substance: ALPRAZOLAM
  10. CITALOPRAM [Concomitant]
     Active Substance: CITALOPRAM HYDROBROMIDE
  11. PAXIL [Concomitant]
     Active Substance: PAROXETINE HYDROCHLORIDE
  12. VITAMIN D [Concomitant]
     Active Substance: CHOLECALCIFEROL
  13. ATENOLOL. [Concomitant]
     Active Substance: ATENOLOL
  14. IRON [Concomitant]
     Active Substance: IRON

REACTIONS (6)
  - Hyperventilation [None]
  - Dysphonia [None]
  - Dyspnoea [None]
  - Stridor [None]
  - Tongue disorder [None]
  - Anxiety [None]

NARRATIVE: CASE EVENT DATE: 20140724
